FAERS Safety Report 6084849-8 (Version None)
Quarter: 2009Q1

REPORT INFORMATION
  Report Type: 
  Country: None (occurrence: None)
  Receive Date: 20090218
  Receipt Date: 20090211
  Transmission Date: 20090719
  Serious: Yes (Other)
  Sender: FDA-Public Use
  Company Number: CERZ-1000482

PATIENT
  Age: 68 Year
  Sex: Male
  Weight: 78 kg

DRUGS (16)
  1. CEREZYME [Suspect]
     Indication: GAUCHER'S DISEASE
     Dosage: 4800 U, Q2W, INTRAVENOUS
     Route: 042
     Dates: start: 19990731
  2. ASPIRIN [Concomitant]
  3. ATENOLOL [Concomitant]
  4. AZOPT [Concomitant]
  5. BRIMONIDINE TARTRATE [Concomitant]
  6. FLUOROMETHOLONE (FLUOROMETHOLONE) [Concomitant]
  7. FOSAMAX [Concomitant]
  8. LANSOPRAZOLE [Concomitant]
  9. LISINOPRIL HYDROCHLORTHIAZID (HYDROCHLOROTHIAZIDE, LISINOPRIL) [Concomitant]
  10. LUMIGAN [Concomitant]
  11. RANITIDINE HCL [Concomitant]
  12. SIMVASTATIN [Concomitant]
  13. TIMOLOL (TIMOLOL MALEATE) [Concomitant]
  14. ASCORBIC ACID [Concomitant]
  15. VITAMIN D [Concomitant]
  16. VITAMIN E (TOCOPHERYL ACETATE) [Concomitant]

REACTIONS (4)
  - BIOPSY LIVER ABNORMAL [None]
  - FALL [None]
  - JOINT INJURY [None]
  - NEOPLASM MALIGNANT [None]
